FAERS Safety Report 17531846 (Version 2)
Quarter: 2020Q3

REPORT INFORMATION
  Report Type: Report from Study
  Country: TH (occurrence: TH)
  Receive Date: 20200311
  Receipt Date: 20200825
  Transmission Date: 20201104
  Serious: Yes (Other)
  Sender: FDA-Public Use
  Company Number: TH-ASTRAZENECA-2020SE33065

PATIENT
  Age: 21670 Day
  Sex: Male

DRUGS (30)
  1. CARBOPLATIN. [Suspect]
     Active Substance: CARBOPLATIN
     Indication: NON-SMALL CELL LUNG CANCER STAGE IV
     Dosage: 546 MG
     Route: 065
     Dates: start: 20191219, end: 20191219
  2. TOLPERISONE [Concomitant]
     Active Substance: TOLPERISONE
     Indication: MYALGIA
     Route: 048
     Dates: start: 20200206
  3. SIMETHICONE (DIMETHICONE) [Concomitant]
     Active Substance: DIMETHICONE
     Indication: ABDOMINAL DISTENSION
     Route: 048
     Dates: start: 20200220
  4. OLECLUMAB. [Suspect]
     Active Substance: OLECLUMAB
     Indication: NON-SMALL CELL LUNG CANCER STAGE IV
     Dosage: 2250 MG
     Route: 042
     Dates: start: 20191107, end: 20191107
  5. OLECLUMAB. [Suspect]
     Active Substance: OLECLUMAB
     Indication: NON-SMALL CELL LUNG CANCER STAGE IV
     Dosage: 3000 MG
     Route: 042
     Dates: start: 20200206, end: 20200206
  6. CARBOPLATIN. [Suspect]
     Active Substance: CARBOPLATIN
     Indication: NON-SMALL CELL LUNG CANCER STAGE IV
     Dosage: 513 MG
     Route: 065
     Dates: start: 20191017, end: 20191017
  7. PEMETREXED. [Suspect]
     Active Substance: PEMETREXED
     Indication: NON-SMALL CELL LUNG CANCER STAGE IV
     Dosage: 810 MG
     Route: 065
     Dates: start: 20191107, end: 20191107
  8. DURVALUMAB. [Suspect]
     Active Substance: DURVALUMAB
     Indication: NON-SMALL CELL LUNG CANCER STAGE IV
     Dosage: 1500 MG
     Route: 042
     Dates: start: 20191107, end: 20191107
  9. PEMETREXED. [Suspect]
     Active Substance: PEMETREXED
     Indication: NON-SMALL CELL LUNG CANCER STAGE IV
     Dosage: 825 MG
     Route: 065
     Dates: start: 20191219, end: 20191219
  10. DURVALUMAB. [Suspect]
     Active Substance: DURVALUMAB
     Indication: NON-SMALL CELL LUNG CANCER STAGE IV
     Dosage: 1500 MG
     Route: 042
     Dates: start: 20191219, end: 20191219
  11. DURVALUMAB. [Suspect]
     Active Substance: DURVALUMAB
     Indication: NON-SMALL CELL LUNG CANCER STAGE IV
     Dosage: 1500 MG
     Route: 042
     Dates: start: 20191017, end: 20191017
  12. DURVALUMAB. [Suspect]
     Active Substance: DURVALUMAB
     Indication: NON-SMALL CELL LUNG CANCER STAGE IV
     Dosage: 1500 MG
     Route: 042
     Dates: start: 20200206, end: 20200206
  13. OLECLUMAB. [Suspect]
     Active Substance: OLECLUMAB
     Indication: NON-SMALL CELL LUNG CANCER STAGE IV
     Dosage: 2250 MG
     Route: 042
     Dates: start: 20191017, end: 20191017
  14. OLECLUMAB. [Suspect]
     Active Substance: OLECLUMAB
     Indication: NON-SMALL CELL LUNG CANCER STAGE IV
     Dosage: 2250 MG
     Route: 042
     Dates: start: 20191128, end: 20191128
  15. OLECLUMAB. [Suspect]
     Active Substance: OLECLUMAB
     Indication: NON-SMALL CELL LUNG CANCER STAGE IV
     Dosage: 3000 MG
     Route: 042
     Dates: start: 20200109, end: 20200109
  16. CARBOPLATIN. [Suspect]
     Active Substance: CARBOPLATIN
     Indication: NON-SMALL CELL LUNG CANCER STAGE IV
     Dosage: 601 MG
     Route: 065
     Dates: start: 20191128, end: 20191128
  17. PEMETREXED. [Suspect]
     Active Substance: PEMETREXED
     Indication: NON-SMALL CELL LUNG CANCER STAGE IV
     Dosage: 800 MG
     Route: 065
     Dates: start: 20191017, end: 20191017
  18. CODEINE PHOSPHATE 15 MG PLUS PARACETAMOL 300 MG [Concomitant]
     Indication: MYALGIA
     Dosage: 1.0DF AS REQUIRED
     Route: 048
     Dates: start: 20200206
  19. DOMPERIDONE [Concomitant]
     Active Substance: DOMPERIDONE
     Indication: ABDOMINAL DISTENSION
     Route: 048
     Dates: start: 20200220
  20. TRAMADOL. [Concomitant]
     Active Substance: TRAMADOL
     Indication: ABDOMINAL PAIN
     Dosage: 50.0MG AS REQUIRED
     Route: 048
     Dates: start: 20200220
  21. LORAZEPAM. [Concomitant]
     Active Substance: LORAZEPAM
     Indication: INSOMNIA
     Dosage: 0.5MG AS REQUIRED
     Route: 048
     Dates: start: 20200220
  22. OLECLUMAB. [Suspect]
     Active Substance: OLECLUMAB
     Indication: NON-SMALL CELL LUNG CANCER STAGE IV
     Dosage: 2250 MG
     Route: 042
     Dates: start: 20191219, end: 20191219
  23. CARBOPLATIN. [Suspect]
     Active Substance: CARBOPLATIN
     Indication: NON-SMALL CELL LUNG CANCER STAGE IV
     Dosage: 606 MG
     Route: 065
     Dates: start: 20191107, end: 20191107
  24. FERIL?6 [Concomitant]
     Indication: PREMEDICATION
     Route: 048
     Dates: start: 20190930
  25. MILK OF MAGNESIA [Concomitant]
     Active Substance: MAGNESIUM HYDROXIDE
     Indication: CONSTIPATION
     Route: 048
     Dates: start: 20200220
  26. DURVALUMAB. [Suspect]
     Active Substance: DURVALUMAB
     Indication: NON-SMALL CELL LUNG CANCER STAGE IV
     Dosage: 1500 MG
     Route: 042
     Dates: start: 20191128, end: 20191128
  27. DURVALUMAB. [Suspect]
     Active Substance: DURVALUMAB
     Indication: NON-SMALL CELL LUNG CANCER STAGE IV
     Dosage: 1500 MG
     Route: 042
     Dates: start: 20200109, end: 20200109
  28. PEMETREXED. [Suspect]
     Active Substance: PEMETREXED
     Indication: NON-SMALL CELL LUNG CANCER STAGE IV
     Dosage: 825 MG
     Route: 065
     Dates: start: 20191128, end: 20191128
  29. PEMETREXED. [Suspect]
     Active Substance: PEMETREXED
     Indication: NON-SMALL CELL LUNG CANCER STAGE IV
     Dosage: 825 MG
     Route: 065
     Dates: start: 20200109, end: 20200109
  30. PEMETREXED. [Suspect]
     Active Substance: PEMETREXED
     Indication: NON-SMALL CELL LUNG CANCER STAGE IV
     Dosage: 830 MG
     Route: 065
     Dates: start: 20200206, end: 20200206

REACTIONS (1)
  - Hepatic enzyme abnormal [Not Recovered/Not Resolved]

NARRATIVE: CASE EVENT DATE: 20200302
